FAERS Safety Report 4313862-3 (Version None)
Quarter: 2004Q1

REPORT INFORMATION
  Report Type: 
  Country: None (occurrence: None)
  Receive Date: 20040305
  Receipt Date: 20040225
  Transmission Date: 20041129
  Serious: Yes (Death)
  Sender: FDA-Public Use
  Company Number: 2003182613FI

PATIENT
  Age: 43 Year
  Sex: Female
  Weight: 58.5 kg

DRUGS (5)
  1. EPIRUBICIN [Suspect]
     Indication: BREAST CANCER
     Dosage: 701 MG/M2 (CUMULATIVE DOSE
     Dates: start: 19970606, end: 19971120
  2. CYCLOPHOSHPAMIDE(CYCLOPHOSPHAMIDE) [Suspect]
     Indication: BREAST CANCER
     Dosage: 8689 MG/M2 (CUMULATIVE DOSE)
     Dates: start: 19970606, end: 19971120
  3. FLUOROURACIL [Suspect]
     Indication: BREAST CANCER
     Dosage: CYCLIC
     Dates: start: 19970606, end: 19971120
  4. TAMOXIFEN(TAMOXIFEN) [Suspect]
     Indication: BREAST CANCER
  5. G-CSF(GRANULOCYTE COLONY STIMULATING FACTOR) [Suspect]

REACTIONS (2)
  - ACUTE MYELOID LEUKAEMIA [None]
  - MYELODYSPLASTIC SYNDROME [None]
